FAERS Safety Report 4699733-1 (Version None)
Quarter: 2005Q2

REPORT INFORMATION
  Report Type: 
  Country: None (occurrence: None)
  Receive Date: 20050623
  Receipt Date: 20050614
  Transmission Date: 20051028
  Serious: Yes (Death, Hospitalization)
  Sender: FDA-Public Use
  Company Number: 430011M05FRA

PATIENT
  Age: 42 Year
  Sex: Female

DRUGS (4)
  1. NOVANTRONE [Suspect]
     Indication: BREAST CANCER
     Dosage: 18 MG, 1 IN 2 MONTHS, INTRAVENOUS)
     Route: 042
     Dates: start: 19980120, end: 19980615
  2. CYCLOPHOSPHAMIDE [Suspect]
     Indication: BREAST CANCER
     Dosage: 750 MG, 1 IN 2 MONTHS, INTRAVENOUS
     Route: 042
     Dates: start: 19980120, end: 19980615
  3. FLUOROURACIL [Concomitant]
     Indication: BREAST CANCER
     Dosage: 750 MG, 1 IN 2 MONTHS, INTRAVENOUS
     Route: 042
     Dates: start: 19980120, end: 19980615
  4. TAMOXIFEN CITRATE [Suspect]
     Indication: BREAST CANCER
     Dosage: 20 MG, 1 IN 1 DAYS, ORAL
     Route: 048
     Dates: start: 19980820, end: 19991028

REACTIONS (2)
  - ACUTE MYELOID LEUKAEMIA [None]
  - PNEUMONITIS [None]
